FAERS Safety Report 8256558-8 (Version None)
Quarter: 2012Q2

REPORT INFORMATION
  Report Type: 
  Country: None (occurrence: None)
  Receive Date: 20120402
  Receipt Date: 20120402
  Transmission Date: 20120825
  Serious: Yes (Hospitalization)
  Sender: FDA-Public Use
  Company Number: None

PATIENT
  Age: 52 Year
  Sex: Male

DRUGS (1)
  1. TIKOSYN [Suspect]
     Indication: ATRIAL FIBRILLATION
     Dosage: 500MCG BID PO
     Route: 048
     Dates: start: 20120312, end: 20120328

REACTIONS (2)
  - HEADACHE [None]
  - NO THERAPEUTIC RESPONSE [None]
